FAERS Safety Report 4544540-3 (Version None)
Quarter: 2005Q1

REPORT INFORMATION
  Report Type: 
  Country: None (occurrence: None)
  Receive Date: 20050105
  Receipt Date: 20041215
  Transmission Date: 20050727
  Serious: Yes (Hospitalization)
  Sender: FDA-Public Use
  Company Number: PHBS2004JP16855

PATIENT
  Age: 59 Year
  Sex: Male
  Weight: 66 kg

DRUGS (4)
  1. PREDNISOLONE [Concomitant]
     Dosage: 20 MG/D
     Route: 048
     Dates: start: 20020101
  2. METENOLONE ACETATE [Concomitant]
     Dosage: 20 MG/D
     Route: 048
     Dates: start: 20020101
  3. CYCLOSPORINE [Suspect]
     Indication: APLASIA PURE RED CELL
     Dosage: 100 MG/D
     Route: 048
     Dates: start: 20020101
  4. RADIATION [Suspect]
     Indication: THYMOMA

REACTIONS (15)
  - BLOOD CREATININE INCREASED [None]
  - BLOOD UREA INCREASED [None]
  - C-REACTIVE PROTEIN INCREASED [None]
  - CARDIAC FAILURE [None]
  - COUGH [None]
  - DYSPNOEA [None]
  - EJECTION FRACTION DECREASED [None]
  - HYPOPROTEINAEMIA [None]
  - OEDEMA PERIPHERAL [None]
  - PERICARDIAL EXCISION [None]
  - PERICARDITIS CONSTRICTIVE [None]
  - PLEURAL EFFUSION [None]
  - RENAL IMPAIRMENT [None]
  - THORACOTOMY [None]
  - VENTRICULAR DYSFUNCTION [None]
